FAERS Safety Report 16595841 (Version 1)
Quarter: 2019Q3

REPORT INFORMATION
  Report Type: Spontaneous
  Country: US (occurrence: US)
  Receive Date: 20190605
  Receipt Date: 20190605
  Transmission Date: 20191004
  Serious: No
  Sender: FDA-Public Use
  Company Number: None

PATIENT
  Age: 68 Year
  Sex: Male

DRUGS (1)
  1. SPRYCEL [Suspect]
     Active Substance: DASATINIB
     Route: 048
     Dates: start: 20160323

REACTIONS (3)
  - Nasal congestion [None]
  - Upper-airway cough syndrome [None]
  - Cough [None]

NARRATIVE: CASE EVENT DATE: 20190605
